FAERS Safety Report 8351768 (Version 4)
Quarter: 2015Q3

REPORT INFORMATION
  Report Type: Spontaneous
  Country: JP (occurrence: JP)
  Receive Date: 20120124
  Receipt Date: 20150806
  Transmission Date: 20151125
  Serious: Yes (Hospitalization, Other)
  Sender: FDA-Public Use
  Company Number: JP-GLAXOSMITHKLINE-B0739166A

PATIENT
  Age: 53 Year
  Sex: Female
  Weight: 70 kg

DRUGS (13)
  1. LOSIZOPILON [Concomitant]
     Route: 048
     Dates: start: 20110720, end: 20110807
  2. MAGNESIUM OXIDE. [Concomitant]
     Active Substance: MAGNESIUM OXIDE
     Dosage: 2 MG, BID
     Dates: end: 20110807
  3. LAMOTRIGINE. [Suspect]
     Active Substance: LAMOTRIGINE
     Indication: SCHIZOAFFECTIVE DISORDER
     Dosage: 25 MG, QD
     Route: 048
     Dates: start: 20110704, end: 20110719
  4. LAMOTRIGINE. [Suspect]
     Active Substance: LAMOTRIGINE
     Dosage: 50 MG, QD
     Route: 048
     Dates: start: 20110720, end: 20110802
  5. GOODMIN [Concomitant]
     Active Substance: BROTIZOLAM
     Dosage: 0.25 MG, QD
     Dates: end: 20110807
  6. SENNOSIDE [Concomitant]
     Active Substance: SENNOSIDES
     Dosage: 24 MG, QD
     Dates: end: 20110807
  7. VALERIN [Concomitant]
     Active Substance: VALPROATE SODIUM
     Indication: MANIA
     Dosage: 200 MG, BID
     Dates: start: 20110601, end: 20110701
  8. TASMOLIN [Concomitant]
     Active Substance: BIPERIDEN
     Indication: EXTRAPYRAMIDAL DISORDER
     Dosage: 1 MG, TID
     Route: 048
     Dates: start: 20110701, end: 20110807
  9. BENZALIN [Concomitant]
     Active Substance: NITRAZEPAM
     Dosage: 15 MG, QD
     Dates: end: 20110807
  10. LITIOMAL [Suspect]
     Active Substance: LITHIUM CARBONATE
     Indication: MANIA
     Dosage: 1000 MG, 1D
     Route: 048
     Dates: start: 20110601, end: 20110807
  11. BEZAFIBRATE [Concomitant]
     Active Substance: BEZAFIBRATE
     Dosage: 200 MG, BID
     Dates: end: 20110807
  12. LULLAN [Concomitant]
     Active Substance: PEROSPIRONE HYDROCHLORIDE
     Indication: DEPRESSION
     Dosage: 8 MG, QID
     Dates: start: 20110701, end: 20110720
  13. LOSIZOPILON [Concomitant]
     Indication: MANIA
     Dosage: 50 MG, QD
     Dates: start: 20110601, end: 20110701

REACTIONS (10)
  - Urticaria [Unknown]
  - Erythema multiforme [Unknown]
  - Neutrophil percentage increased [Unknown]
  - Generalised oedema [Unknown]
  - Depressive symptom [Unknown]
  - Pigmentation disorder [Unknown]
  - Generalised erythema [Unknown]
  - Alanine aminotransferase increased [Unknown]
  - Aspartate aminotransferase increased [Unknown]
  - Hypomania [Not Recovered/Not Resolved]

NARRATIVE: CASE EVENT DATE: 20110731
